FAERS Safety Report 10416256 (Version 1)
Quarter: 2014Q2

REPORT INFORMATION
  Report Type: Spontaneous
  Country: US (occurrence: None)
  Receive Date: 20140604
  Receipt Date: 20140604
  Transmission Date: 20141212
  Serious: Yes (Other)
  Sender: FDA-Public Use
  Company Number: 163-POMAL-140214843

PATIENT
  Age: 64 Year
  Sex: Male
  Weight: 86.2 kg

DRUGS (6)
  1. POMALYST (POMALIDOMIDE) (4 MILLIGRAM, CAPSULES) [Suspect]
     Indication: PLASMA CELL MYELOMA
     Route: 048
     Dates: start: 201312
  2. DEXAMETHASONE [Concomitant]
  3. PREMARIN (ESTROGENS CONJUGATED) [Concomitant]
  4. LEVOTHYROXINE [Concomitant]
  5. SIMVASTATIN [Concomitant]
  6. ZOVIRAX (ACICLOVIR) [Concomitant]

REACTIONS (1)
  - Anaemia [None]
